FAERS Safety Report 9207198 (Version 1)
Quarter: 2013Q2

REPORT INFORMATION
  Report Type: Report from Study
  Country: US (occurrence: US)
  Receive Date: 20130403
  Receipt Date: 20130403
  Transmission Date: 20140414
  Serious: Yes (Other)
  Sender: FDA-Public Use
  Company Number: US-JNJFOC-20130316554

PATIENT
  Sex: 0

DRUGS (2)
  1. REMICADE [Suspect]
     Indication: COLITIS ULCERATIVE
     Route: 042
  2. REMICADE [Suspect]
     Indication: COLITIS ULCERATIVE
     Dosage: MAXIMUM DOSE
     Route: 042

REACTIONS (8)
  - Pneumonia [Unknown]
  - Alopecia [Unknown]
  - Decreased immune responsiveness [Unknown]
  - Palpitations [Unknown]
  - Rash [Unknown]
  - Vomiting [Unknown]
  - Infusion related reaction [Unknown]
  - Drug ineffective [Unknown]
